FAERS Safety Report 7602941-0 (Version None)
Quarter: 2011Q3

REPORT INFORMATION
  Report Type: 
  Country: None (occurrence: None)
  Receive Date: 20110711
  Receipt Date: 20110711
  Transmission Date: 20111222
  Serious: Yes (Hospitalization, Other)
  Sender: FDA-Public Use
  Company Number: None

PATIENT
  Sex: Female
  Weight: 70.6 kg

DRUGS (1)
  1. PACLITAXEL [Suspect]
     Dosage: 144MG IV
     Route: 042

REACTIONS (3)
  - ABDOMINAL DISCOMFORT [None]
  - TACHYCARDIA [None]
  - IDIOSYNCRATIC DRUG REACTION [None]
